FAERS Safety Report 12380025 (Version 1)
Quarter: 2016Q2

REPORT INFORMATION
  Report Type: Report from Study
  Country: US (occurrence: US)
  Receive Date: 20160518
  Receipt Date: 20160518
  Transmission Date: 20160815
  Serious: Yes (Other)
  Sender: FDA-Public Use
  Company Number: US-BEH-2016062695

PATIENT
  Age: 49 Year
  Sex: Female

DRUGS (1)
  1. BERINERT [Suspect]
     Active Substance: HUMAN C1-ESTERASE INHIBITOR
     Indication: PRODUCT USED FOR UNKNOWN INDICATION

REACTIONS (4)
  - Hysterectomy [Unknown]
  - Cyst removal [Unknown]
  - Bladder repair [Unknown]
  - Cyst [Unknown]

NARRATIVE: CASE EVENT DATE: 20160413
